FAERS Safety Report 6908519-6 (Version None)
Quarter: 2010Q3

REPORT INFORMATION
  Report Type: 
  Country: None (occurrence: None)
  Receive Date: 20100805
  Receipt Date: 20100723
  Transmission Date: 20110219
  Serious: Yes (Death)
  Sender: FDA-Public Use
  Company Number: US-ELI_LILLY_AND_COMPANY-US201007005739

PATIENT
  Age: 65 Year
  Sex: Female

DRUGS (3)
  1. SYMBYAX [Suspect]
     Dosage: 1 D/F, DAILY (1/D)
     Dates: start: 20090105
  2. ASPIRIN [Concomitant]
  3. NORVASC [Concomitant]

REACTIONS (1)
  - MYOCARDIAL INFARCTION [None]
